FAERS Safety Report 6652447-0 (Version None)
Quarter: 2010Q1

REPORT INFORMATION
  Report Type: 
  Country: None (occurrence: None)
  Receive Date: 20100325
  Receipt Date: 20100316
  Transmission Date: 20100710
  Serious: Yes (Life-Threatening, Hospitalization, Disabling, Other)
  Sender: FDA-Public Use
  Company Number: US-MERCK-1003USA01383

PATIENT
  Age: 45 Year
  Sex: Male

DRUGS (3)
  1. SINGULAIR [Suspect]
     Indication: RHINITIS SEASONAL
     Dosage: SEASONALLY
     Route: 048
     Dates: start: 20070301, end: 20070501
  2. SINGULAIR [Suspect]
     Dosage: SEASONALLY
     Route: 048
     Dates: start: 20080301, end: 20080501
  3. SINGULAIR [Suspect]
     Dosage: SEASONALLY
     Route: 048
     Dates: start: 20090301, end: 20090408

REACTIONS (1)
  - LARGE INTESTINE PERFORATION [None]
